FAERS Safety Report 5783090-3 (Version None)
Quarter: 2008Q2

REPORT INFORMATION
  Report Type: 
  Country: None (occurrence: None)
  Receive Date: 20080619
  Receipt Date: 20080619
  Transmission Date: 20081010
  Serious: No
  Sender: FDA-Public Use
  Company Number: None

PATIENT
  Age: 28 Year
  Sex: Female
  Weight: 51.7101 kg

DRUGS (2)
  1. ZYRTEC D -PRESCRIPTION- ? [Suspect]
     Indication: SEASONAL ALLERGY
     Dosage: 1 DAILY PO MONTH
     Route: 048
     Dates: start: 20080505, end: 20080531
  2. ZYRTEC D -OTC- ? [Suspect]

REACTIONS (5)
  - DEPRESSION [None]
  - FATIGUE [None]
  - LETHARGY [None]
  - MOOD SWINGS [None]
  - PHARMACEUTICAL PRODUCT COMPLAINT [None]
